FAERS Safety Report 5099590-8 (Version None)
Quarter: 2006Q3

REPORT INFORMATION
  Report Type: 
  Country: None (occurrence: None)
  Receive Date: 20060906
  Receipt Date: 20060823
  Transmission Date: 20061208
  Serious: Yes (Hospitalization)
  Sender: FDA-Public Use
  Company Number: SPV1-2006-00563

PATIENT
  Age: 49 Year
  Sex: Female

DRUGS (8)
  1. CARBAMAZEPINE [Suspect]
     Dosage: SEE IMAGE
  2. CARBAMAZEPINE [Suspect]
     Dosage: SEE IMAGE
  3. RITONAVIR (RITONAVIR) [Suspect]
     Indication: HIV INFECTION
     Dosage: 400 MG 2X DAILY,
  4. EFAVIRENZ [Suspect]
     Indication: HIV INFECTION
     Dosage: 600 MG DAILY,
  5. ZIDOVUDINE [Concomitant]
  6. LAMIVUDINE [Concomitant]
  7. INDINAVIR (INDINAVIR) [Concomitant]
  8. SAQUINAVIR (SAQUINAVIR) [Concomitant]

REACTIONS (9)
  - ABASIA [None]
  - ABDOMINAL PAIN [None]
  - ANTICONVULSANT DRUG LEVEL ABOVE THERAPEUTIC [None]
  - COORDINATION ABNORMAL [None]
  - DRUG INTERACTION [None]
  - FALL [None]
  - MUSCULAR WEAKNESS [None]
  - NAUSEA [None]
  - THERAPEUTIC AGENT TOXICITY [None]
